FAERS Safety Report 5568699-4 (Version None)
Quarter: 2007Q4

REPORT INFORMATION
  Report Type: 
  Country: None (occurrence: None)
  Receive Date: 20071220
  Receipt Date: 20061102
  Transmission Date: 20080405
  Serious: No
  Sender: FDA-Public Use
  Company Number: A0626047A

PATIENT
  Sex: Male

DRUGS (11)
  1. AVODART [Suspect]
     Indication: BENIGN PROSTATIC HYPERPLASIA
     Dosage: 1CAP PER DAY
     Route: 048
     Dates: start: 20050501
  2. METFORMIN HCL [Concomitant]
  3. TOPROL-XL [Concomitant]
  4. FLOMAX [Concomitant]
  5. MONOPRIL [Concomitant]
  6. DETROL [Concomitant]
  7. PROTINEX [Concomitant]
  8. LIPITOR [Concomitant]
  9. SPIRONOLACTONE [Concomitant]
  10. FUROSEMIDE [Concomitant]
  11. RHINOCORT SPRAY [Concomitant]

REACTIONS (1)
  - MEDICATION RESIDUE [None]
